FAERS Safety Report 8524558 (Version 3)
Quarter: 2013Q4

REPORT INFORMATION
  Report Type: Report from Study
  Country: US (occurrence: US)
  Receive Date: 20120420
  Receipt Date: 20131216
  Transmission Date: 20140711
  Serious: Yes (Hospitalization)
  Sender: FDA-Public Use
  Company Number: US-PFIZER INC-2012094189

PATIENT
  Age: 74 Year
  Sex: Male
  Weight: 77.7 kg

DRUGS (4)
  1. ERLOTINIB [Suspect]
     Indication: NON-SMALL CELL LUNG CANCER
     Dosage: 150 MG (DOSE LEVEL 0), 1X/DAY
     Route: 048
     Dates: start: 20120215, end: 20120312
  2. PLACEBO [Suspect]
     Indication: NON-SMALL CELL LUNG CANCER
     Dosage: UNK
     Route: 048
     Dates: start: 20120215, end: 20120312
  3. IBUPROFEN [Suspect]
     Indication: PAIN
     Dosage: 600 MG, 3X/DAY
     Route: 048
     Dates: start: 20120225, end: 20120317
  4. ASA [Suspect]
     Indication: MYOCARDIAL INFARCTION
     Dosage: 81 MG, 1X/DAY
     Route: 048
     Dates: start: 2005, end: 20120317

REACTIONS (1)
  - Pneumoperitoneum [Recovered/Resolved]
